FAERS Safety Report 7031356-1 (Version None)
Quarter: 2010Q4

REPORT INFORMATION
  Report Type: 
  Country: None (occurrence: None)
  Receive Date: 20101006
  Receipt Date: 20100924
  Transmission Date: 20110411
  Serious: Yes (Hospitalization)
  Sender: FDA-Public Use
  Company Number: SG-TYCO HEALTHCARE/MALLINCKRODT-T201002055

PATIENT
  Age: 55 Year
  Sex: Male

DRUGS (1)
  1. MORPHINE [Suspect]
     Dosage: UNK

REACTIONS (1)
  - ACUTE GENERALISED EXANTHEMATOUS PUSTULOSIS [None]
